FAERS Safety Report 24194082 (Version 1)
Quarter: 2024Q3

REPORT INFORMATION
  Report Type: Spontaneous
  Country: US (occurrence: None)
  Receive Date: 20240809
  Receipt Date: 20240809
  Transmission Date: 20241017
  Serious: No
  Sender: ASTRAZENECA
  Company Number: 2024A174244

PATIENT
  Sex: Male

DRUGS (23)
  1. FASENRA [Suspect]
     Active Substance: BENRALIZUMAB
     Indication: Asthma
     Route: 058
  2. ALLOPURINOL [Concomitant]
     Active Substance: ALLOPURINOL
  3. FISH OIL [Concomitant]
     Active Substance: FISH OIL
  4. CENTRUM SILVER 50+MEN [Concomitant]
  5. OSTEO BI-FLEX ADVANCED TR [Concomitant]
  6. COENZYME Q10 [Concomitant]
     Active Substance: DIETARY SUPPLEMENT\UBIDECARENONE
  7. TAMSULOSIN HYDROCHLORIDE [Concomitant]
     Active Substance: TAMSULOSIN HYDROCHLORIDE
  8. VITAMIN D2 [Concomitant]
     Active Substance: ERGOCALCIFEROL
  9. ATORVASTATIN CALCIUM [Concomitant]
     Active Substance: ATORVASTATIN CALCIUM
  10. LOSARTAN POTASSIUM [Concomitant]
     Active Substance: LOSARTAN POTASSIUM
  11. CARVEDILOL [Concomitant]
     Active Substance: CARVEDILOL
  12. GLIPIZIDE [Concomitant]
     Active Substance: GLIPIZIDE
  13. FINASTERIDE [Concomitant]
     Active Substance: FINASTERIDE
  14. LANTUS SOLOSTAR [Concomitant]
     Active Substance: INSULIN GLARGINE
  15. CALCIDOL [Concomitant]
  16. SPIRIVA RESPIMAT [Concomitant]
     Active Substance: TIOTROPIUM BROMIDE
  17. ADVAIR DISKUS [Concomitant]
     Active Substance: FLUTICASONE PROPIONATE\SALMETEROL XINAFOATE
  18. LATANOPROST [Concomitant]
     Active Substance: LATANOPROST
  19. DORZOLAMIDE HCL/TIMOLOL M [Concomitant]
  20. VENTOLIN HFA [Concomitant]
     Active Substance: ALBUTEROL SULFATE
  21. BUMETANIDE [Concomitant]
     Active Substance: BUMETANIDE
  22. TRULICITY [Concomitant]
     Active Substance: DULAGLUTIDE
  23. EUTHYROX [Concomitant]
     Active Substance: LEVOTHYROXINE SODIUM

REACTIONS (1)
  - Dyspnoea [Unknown]
